FAERS Safety Report 18557757 (Version 1)
Quarter: 2020Q4

REPORT INFORMATION
  Report Type: Spontaneous
  Country: US (occurrence: US)
  Receive Date: 20201130
  Receipt Date: 20201130
  Transmission Date: 20210114
  Serious: Yes (Other)
  Sender: FDA-Public Use
  Company Number: US-BRISTOL-MYERS SQUIBB COMPANY-BMS-2020-097683

PATIENT
  Sex: Female
  Weight: 49.89 kg

DRUGS (1)
  1. SPRYCEL [Suspect]
     Active Substance: DASATINIB
     Indication: CHRONIC MYELOID LEUKAEMIA
     Dosage: DAILY AT NIGHT UNK DOSE
     Route: 065
     Dates: end: 202008

REACTIONS (6)
  - Gastrointestinal pain [Unknown]
  - Frequent bowel movements [Unknown]
  - Atrial fibrillation [Unknown]
  - Peripheral coldness [Unknown]
  - Decreased appetite [Unknown]
  - Graft versus host disease in skin [Unknown]
